FAERS Safety Report 6240614-X (Version None)
Quarter: 2009Q2

REPORT INFORMATION
  Report Type: 
  Country: None (occurrence: None)
  Receive Date: 20090623
  Receipt Date: 20081106
  Transmission Date: 20091009
  Serious: No
  Sender: FDA-Public Use
  Company Number: US-ASTRAZENECA-2008UW24822

PATIENT
  Age: 70 Year
  Sex: Male
  Weight: 65.8 kg

DRUGS (8)
  1. PULMICORT RESPULES [Suspect]
     Indication: LUNG DISORDER
     Route: 055
  2. NEURONTIN [Concomitant]
  3. REGLAN [Concomitant]
  4. PREVACID [Concomitant]
  5. STOOL SOFTENER [Concomitant]
  6. ONDANSETRON [Concomitant]
  7. BACLOFEN [Concomitant]
     Dosage: PRN
  8. O2 [Concomitant]

REACTIONS (2)
  - BODY TEMPERATURE INCREASED [None]
  - HICCUPS [None]
